FAERS Safety Report 19380587 (Version 4)
Quarter: 2022Q4

REPORT INFORMATION
  Report Type: Other
  Country: US (occurrence: None)
  Receive Date: 20210607
  Receipt Date: 20221104
  Transmission Date: 20230112
  Serious: Yes (Other)
  Sender: FDA-Public Use
  Company Number: US-ROCHE-2840039

PATIENT
  Age: 72 Year
  Sex: Male
  Weight: 70.824 kg

DRUGS (24)
  1. OCREVUS [Suspect]
     Active Substance: OCRELIZUMAB
     Indication: Relapsing multiple sclerosis
     Dosage: 300 MG ON DAY 1 AND DAY 15?DATE OF TREATMENT: 14/MAR/2019, 12/NOV/2019, 01/JUN/2020, 23/DEC/2020
     Route: 042
     Dates: start: 20190228
  2. CIPRO [Concomitant]
     Active Substance: CIPROFLOXACIN HYDROCHLORIDE
  3. AMLODIPINE [Concomitant]
     Active Substance: AMLODIPINE BESYLATE
     Route: 048
  4. ATORVASTATIN [Concomitant]
     Active Substance: ATORVASTATIN
  5. BENADRYL [Concomitant]
     Active Substance: DIPHENHYDRAMINE HYDROCHLORIDE
     Route: 048
  6. BUTALBITAL, ACETAMINOPHEN, AND CAFFEINE [Concomitant]
     Active Substance: ACETAMINOPHEN\BUTALBITAL\CAFFEINE
     Dosage: 50 MG- 325MG- 40MG
  7. CICLOPIROX [Concomitant]
     Active Substance: CICLOPIROX
     Dosage: TOPICAL SOLUTION
  8. CIPROFLOXACIN [Concomitant]
     Active Substance: CIPROFLOXACIN
  9. DEXTROAMPHETAMINE [Concomitant]
     Active Substance: DEXTROAMPHETAMINE
     Dosage: ER
  10. GEMTESA [Concomitant]
     Active Substance: VIBEGRON
  11. HYDROCORTISONE ACETATE [Concomitant]
     Active Substance: HYDROCORTISONE ACETATE
     Route: 054
  12. LATANOPROST [Concomitant]
     Active Substance: LATANOPROST
  13. LEVOFLOXACIN [Concomitant]
     Active Substance: LEVOFLOXACIN
  14. METHYLPREDNISOLONE SODIUM SUCCINATE [Concomitant]
     Active Substance: METHYLPREDNISOLONE SODIUM SUCCINATE
     Dosage: SOLUTION FOR INJECTION
  15. METOPROLOL TARTRATE [Concomitant]
     Active Substance: METOPROLOL TARTRATE
     Route: 048
  16. METRONIDAZOLE [Concomitant]
     Active Substance: METRONIDAZOLE
  17. MIRALAX [Concomitant]
     Active Substance: POLYETHYLENE GLYCOL 3350
  18. OLANZAPINE [Concomitant]
     Active Substance: OLANZAPINE
     Route: 048
  19. OMEPRAZOLE [Concomitant]
     Active Substance: OMEPRAZOLE
     Route: 048
  20. ONDANSETRON [Concomitant]
     Active Substance: ONDANSETRON
     Dosage: UNDER TONGUE
  21. TRAMADOL [Concomitant]
     Active Substance: TRAMADOL
     Route: 048
  22. TRAZODONE [Concomitant]
     Active Substance: TRAZODONE HYDROCHLORIDE
     Route: 048
  23. TROKENDI XR [Concomitant]
     Active Substance: TOPIRAMATE
  24. COVID-19 VACCINE [Concomitant]

REACTIONS (14)
  - Diverticulitis [Recovered/Resolved]
  - Haemorrhoids [Unknown]
  - White blood cell count increased [Unknown]
  - Depression [Unknown]
  - Hypoacusis [Not Recovered/Not Resolved]
  - Headache [Unknown]
  - Colitis ulcerative [Recovered/Resolved]
  - Upper respiratory tract infection [Not Recovered/Not Resolved]
  - Fatigue [Not Recovered/Not Resolved]
  - Pruritus [Recovered/Resolved]
  - Flushing [Recovered/Resolved]
  - Nausea [Recovered/Resolved]
  - Cough [Recovered/Resolved]
  - Choking [Recovered/Resolved]

NARRATIVE: CASE EVENT DATE: 20210101
